FAERS Safety Report 7979546-5 (Version None)
Quarter: 2011Q4

REPORT INFORMATION
  Report Type: 
  Country: None (occurrence: None)
  Receive Date: 20111214
  Receipt Date: 20111203
  Transmission Date: 20120403
  Serious: Yes (Hospitalization)
  Sender: FDA-Public Use
  Company Number: IL-MPIJNJ-2011-05857

PATIENT

DRUGS (6)
  1. CYCLOPHOSPHAMIDE [Concomitant]
  2. RESPRIM [Concomitant]
     Indication: PROPHYLAXIS
  3. ACYCLOVIR [Concomitant]
     Indication: PROPHYLAXIS
     Dosage: 200 MG, UNK
  4. VELCADE [Suspect]
     Indication: HYPERGAMMAGLOBULINAEMIA BENIGN MONOCLONAL
     Dosage: UNK
     Dates: start: 20110201
  5. DEXAMETHASONE [Concomitant]
     Indication: HYPERGAMMAGLOBULINAEMIA BENIGN MONOCLONAL
     Dosage: UNK
     Dates: start: 20110201
  6. FLUCONAZOLE [Concomitant]
     Indication: PROPHYLAXIS

REACTIONS (2)
  - CYTOMEGALOVIRUS INFECTION [None]
  - HERPES OESOPHAGITIS [None]
